FAERS Safety Report 4661690-1 (Version None)
Quarter: 2005Q2

REPORT INFORMATION
  Report Type: 
  Country: None (occurrence: None)
  Receive Date: 20050502
  Receipt Date: 20050119
  Transmission Date: 20051028
  Serious: No
  Sender: FDA-Public Use
  Company Number: 200510608US

PATIENT
  Age: 40 Year
  Sex: Female

DRUGS (1)
  1. KETEK [Suspect]

REACTIONS (2)
  - VERTIGO [None]
  - VOMITING [None]
